FAERS Safety Report 18340839 (Version 2)
Quarter: 2020Q4

REPORT INFORMATION
  Report Type: Spontaneous
  Country: JP (occurrence: JP)
  Receive Date: 20201003
  Receipt Date: 20201123
  Transmission Date: 20210113
  Serious: Yes (Hospitalization, Other)
  Sender: FDA-Public Use
  Company Number: JP-009507513-2009JPN001673J

PATIENT
  Age: 73 Year
  Sex: Male

DRUGS (3)
  1. KEYTRUDA [Suspect]
     Active Substance: PEMBROLIZUMAB
     Indication: LUNG SQUAMOUS CELL CARCINOMA STAGE IV
     Dosage: 200 MILLIGRAM, Q3W
     Route: 041
     Dates: start: 202006, end: 20200915
  2. CARBOPLATIN. [Concomitant]
     Active Substance: CARBOPLATIN
     Indication: LUNG SQUAMOUS CELL CARCINOMA STAGE IV
     Dosage: UNK
     Route: 041
     Dates: start: 202006, end: 202008
  3. PACLITAXEL. [Concomitant]
     Active Substance: PACLITAXEL
     Indication: LUNG SQUAMOUS CELL CARCINOMA STAGE IV
     Dosage: UNK
     Route: 041
     Dates: start: 202006, end: 202008

REACTIONS (4)
  - Bacterial sepsis [Recovering/Resolving]
  - Urinary tract infection bacterial [Unknown]
  - Immune-mediated thyroiditis [Recovered/Resolved]
  - Adrenal insufficiency [Not Recovered/Not Resolved]

NARRATIVE: CASE EVENT DATE: 202009
